FAERS Safety Report 24884277 (Version 2)
Quarter: 2025Q1

REPORT INFORMATION
  Report Type: Report from Study
  Country: FR (occurrence: FR)
  Receive Date: 20250124
  Receipt Date: 20250210
  Transmission Date: 20250409
  Serious: Yes (Hospitalization)
  Sender: MYLAN
  Company Number: FR-SA-2025SA008696

PATIENT
  Age: 76 Year
  Sex: Male
  Weight: 59.6 kg

DRUGS (40)
  1. DEXAMETHASONE [Suspect]
     Active Substance: DEXAMETHASONE
     Indication: Plasma cell myeloma refractory
     Dosage: 40 MILLIGRAM, QW
     Route: 065
     Dates: start: 20240423, end: 20240514
  2. DEXAMETHASONE [Suspect]
     Active Substance: DEXAMETHASONE
     Dosage: 40 MILLIGRAM, QW
     Route: 065
     Dates: start: 20240521, end: 20240611
  3. DEXAMETHASONE [Suspect]
     Active Substance: DEXAMETHASONE
     Dosage: 40 MILLIGRAM, QW
     Route: 065
     Dates: start: 20240618, end: 20240702
  4. DEXAMETHASONE [Suspect]
     Active Substance: DEXAMETHASONE
     Dosage: 40 MILLIGRAM, QW
     Route: 065
     Dates: start: 20240716, end: 20240730
  5. DEXAMETHASONE [Suspect]
     Active Substance: DEXAMETHASONE
     Dosage: 40 MILLIGRAM, QW
     Route: 065
     Dates: start: 20240813, end: 20240827
  6. DEXAMETHASONE [Suspect]
     Active Substance: DEXAMETHASONE
     Dosage: 40 MILLIGRAM, QW
     Route: 065
     Dates: start: 20240910, end: 20240924
  7. DEXAMETHASONE [Suspect]
     Active Substance: DEXAMETHASONE
     Dosage: 40 MILLIGRAM, QW
     Route: 065
     Dates: start: 20241008, end: 20241022
  8. DEXAMETHASONE [Suspect]
     Active Substance: DEXAMETHASONE
     Dosage: 40 MILLIGRAM, QW
     Route: 065
     Dates: start: 20241105, end: 20241119
  9. DEXAMETHASONE [Suspect]
     Active Substance: DEXAMETHASONE
     Dosage: 40 MILLIGRAM, QW
     Route: 065
     Dates: start: 20241203, end: 20241217
  10. ISATUXIMAB [Suspect]
     Active Substance: ISATUXIMAB
     Indication: Plasma cell myeloma refractory
     Dosage: 540 MILLIGRAM, QW
     Route: 065
     Dates: start: 20240423, end: 20240514
  11. ISATUXIMAB [Suspect]
     Active Substance: ISATUXIMAB
     Dosage: 1080 MILLIGRAM, QW (540 MG, BIW)
     Route: 065
     Dates: start: 20240521, end: 20240604
  12. ISATUXIMAB [Suspect]
     Active Substance: ISATUXIMAB
     Dosage: 1080 MILLIGRAM, QW (540 MG, BIW)
     Route: 065
     Dates: start: 20240618, end: 20240702
  13. ISATUXIMAB [Suspect]
     Active Substance: ISATUXIMAB
     Dosage: 1080 MILLIGRAM, QW (540 MG, BIW)
     Route: 065
     Dates: start: 20240716, end: 20240730
  14. ISATUXIMAB [Suspect]
     Active Substance: ISATUXIMAB
     Dosage: 1080 MILLIGRAM, QW (540 MG, BIW)
     Route: 065
     Dates: start: 20240813, end: 20240827
  15. ISATUXIMAB [Suspect]
     Active Substance: ISATUXIMAB
     Dosage: 1060 MILLIGRAM, QW (530 MG, BIW)
     Route: 065
     Dates: start: 20240910, end: 20240924
  16. ISATUXIMAB [Suspect]
     Active Substance: ISATUXIMAB
     Dosage: 1080 MILLIGRAM, QW (540 MG, BIW)
     Route: 065
     Dates: start: 20241008, end: 20241022
  17. ISATUXIMAB [Suspect]
     Active Substance: ISATUXIMAB
     Dosage: 1080 MILLIGRAM, QW (540 MG, BIW)
     Route: 065
     Dates: start: 20241105, end: 20241119
  18. ISATUXIMAB [Suspect]
     Active Substance: ISATUXIMAB
     Dosage: 1080 MILLIGRAM, QW (540 MG, BIW)
     Route: 065
     Dates: start: 20241203, end: 20241217
  19. CARFILZOMIB [Suspect]
     Active Substance: CARFILZOMIB
     Indication: Plasma cell myeloma refractory
     Dosage: 32 MILLIGRAM, QD
     Route: 065
     Dates: start: 20240423, end: 20240423
  20. CARFILZOMIB [Suspect]
     Active Substance: CARFILZOMIB
     Dosage: 110 MILLIGRAM, QW
     Route: 065
     Dates: start: 20240430, end: 20240507
  21. CARFILZOMIB [Suspect]
     Active Substance: CARFILZOMIB
     Dosage: 110 MILLIGRAM, QW
     Route: 065
     Dates: start: 20240521, end: 20240604
  22. CARFILZOMIB [Suspect]
     Active Substance: CARFILZOMIB
     Dosage: 110 MILLIGRAM, QW
     Route: 065
     Dates: start: 20240618, end: 20240702
  23. CARFILZOMIB [Suspect]
     Active Substance: CARFILZOMIB
     Dosage: 110 MILLIGRAM, QW
     Route: 065
     Dates: start: 20240716, end: 20240730
  24. CARFILZOMIB [Suspect]
     Active Substance: CARFILZOMIB
     Dosage: 110 MILLIGRAM, QW
     Route: 065
     Dates: start: 20240813, end: 20240827
  25. CARFILZOMIB [Suspect]
     Active Substance: CARFILZOMIB
     Dosage: 110 MILLIGRAM, QW
     Route: 065
     Dates: start: 20240910, end: 20240924
  26. CARFILZOMIB [Suspect]
     Active Substance: CARFILZOMIB
     Dosage: 110 MILLIGRAM, QW
     Route: 065
     Dates: start: 20241008, end: 20241022
  27. CARFILZOMIB [Suspect]
     Active Substance: CARFILZOMIB
     Dosage: 108 MILLIGRAM, QW
     Route: 065
     Dates: start: 20241008, end: 20241008
  28. CARFILZOMIB [Suspect]
     Active Substance: CARFILZOMIB
     Dosage: 88 MILLIGRAM, QW
     Route: 065
     Dates: start: 20241015, end: 20241015
  29. CARFILZOMIB [Suspect]
     Active Substance: CARFILZOMIB
     Dosage: 88 MILLIGRAM, QW
     Route: 065
     Dates: start: 20241105, end: 20241119
  30. CARFILZOMIB [Suspect]
     Active Substance: CARFILZOMIB
     Dosage: 88 MILLIGRAM, QW
     Route: 065
     Dates: start: 20241203, end: 20241217
  31. RIVAROXABAN [Concomitant]
     Active Substance: RIVAROXABAN
     Indication: Venous thrombosis
     Route: 065
     Dates: start: 2018
  32. OMEPRAZOLE [Concomitant]
     Active Substance: OMEPRAZOLE
     Indication: Gastrointestinal disorder
     Route: 065
  33. EZETIMIBE [Concomitant]
     Active Substance: EZETIMIBE
     Indication: Hypercholesterolaemia
     Route: 065
  34. ACETAMINOPHEN [Concomitant]
     Active Substance: ACETAMINOPHEN
     Indication: Premedication
     Route: 065
     Dates: start: 20240423, end: 20241217
  35. DEXCHLORPHENIRAMINE [Concomitant]
     Active Substance: DEXCHLORPHENIRAMINE
     Indication: Premedication
     Route: 065
     Dates: start: 20240423, end: 20241217
  36. BACTRIM [Concomitant]
     Active Substance: SULFAMETHOXAZOLE\TRIMETHOPRIM
     Indication: Premedication
     Route: 065
     Dates: start: 20240423, end: 20241217
  37. VALACYCLOVIR HYDROCHLORIDE [Concomitant]
     Active Substance: VALACYCLOVIR HYDROCHLORIDE
     Indication: Premedication
     Route: 065
     Dates: start: 20240423, end: 20241217
  38. AMOXICILLIN [Concomitant]
     Active Substance: AMOXICILLIN
     Indication: Premedication
     Route: 065
     Dates: start: 20240423, end: 20241217
  39. OXYCONTIN [Concomitant]
     Active Substance: OXYCODONE HYDROCHLORIDE
     Indication: Musculoskeletal chest pain
     Route: 065
     Dates: start: 20240423
  40. OXYCODONE HYDROCHLORIDE [Concomitant]
     Active Substance: OXYCODONE HYDROCHLORIDE
     Indication: Arthralgia
     Route: 065
     Dates: start: 20240423

REACTIONS (1)
  - Plasma cell myeloma recurrent [Recovering/Resolving]

NARRATIVE: CASE EVENT DATE: 20241219
